FAERS Safety Report 8303598-6 (Version None)
Quarter: 2012Q2

REPORT INFORMATION
  Report Type: 
  Country: None (occurrence: None)
  Receive Date: 20120416
  Receipt Date: 20120405
  Transmission Date: 20120825
  Serious: Yes (Other)
  Sender: FDA-Public Use
  Company Number: 0227424

PATIENT
  Sex: Female

DRUGS (3)
  1. ESTROGEN (ESTROGEN NOS) [Concomitant]
  2. TACHOSIL [Suspect]
     Indication: BRAIN NEOPLASM
  3. TACHOSIL [Suspect]
     Indication: VASCULAR OPERATION

REACTIONS (3)
  - VISUAL ACUITY REDUCED [None]
  - THROMBOSIS [None]
  - OFF LABEL USE [None]
